FAERS Safety Report 9110205 (Version 3)
Quarter: 2013Q2

REPORT INFORMATION
  Report Type: Report from Study
  Country: AU (occurrence: AU)
  Receive Date: 20130222
  Receipt Date: 20130604
  Transmission Date: 20140414
  Serious: Yes (Other)
  Sender: FDA-Public Use
  Company Number: AU-ROCHE-1185622

PATIENT
  Age: 65 Year
  Sex: Female

DRUGS (1)
  1. ACTEMRA [Suspect]
     Indication: RHEUMATOID ARTHRITIS
     Route: 042
     Dates: start: 20101129

REACTIONS (5)
  - Neutropenia [Recovering/Resolving]
  - Contusion [Unknown]
  - Wound dehiscence [Recovering/Resolving]
  - Joint effusion [Unknown]
  - Arthritis infective [Unknown]
